FAERS Safety Report 5568142-5 (Version None)
Quarter: 2007Q4

REPORT INFORMATION
  Report Type: 
  Country: None (occurrence: None)
  Receive Date: 20071220
  Receipt Date: 20070411
  Transmission Date: 20080405
  Serious: No
  Sender: FDA-Public Use
  Company Number: US-KINGPHARMUSA00001-K200700457

PATIENT

DRUGS (1)
  1. THALITONE TABLETS [Suspect]
     Indication: HYPERCALCIURIA
     Dosage: 15 MG, MONDAY TO FRIDAY, QD
     Route: 048
     Dates: start: 20060401

REACTIONS (1)
  - TOOTH DISCOLOURATION [None]
